FAERS Safety Report 6120400-1 (Version None)
Quarter: 2009Q1

REPORT INFORMATION
  Report Type: 
  Country: None (occurrence: None)
  Receive Date: 20090317
  Receipt Date: 20090306
  Transmission Date: 20090719
  Serious: Yes (Other)
  Sender: FDA-Public Use
  Company Number: PHHY2009CH08232

PATIENT
  Sex: Male

DRUGS (1)
  1. TEGRETOL [Suspect]
     Indication: PETIT MAL EPILEPSY
     Dosage: UNK
     Dates: start: 20080404, end: 20080401

REACTIONS (11)
  - AGGRESSION [None]
  - CONSTIPATION [None]
  - DRUG HYPERSENSITIVITY [None]
  - DYSKINESIA [None]
  - ERYTHEMA [None]
  - FATIGUE [None]
  - HYPERHIDROSIS [None]
  - HYPERTENSION [None]
  - TREMOR [None]
  - WEIGHT INCREASED [None]
  - YELLOW SKIN [None]
